FAERS Safety Report 5829991-9 (Version None)
Quarter: 2008Q3

REPORT INFORMATION
  Report Type: 
  Country: None (occurrence: None)
  Receive Date: 20080722
  Receipt Date: 20080417
  Transmission Date: 20090109
  Serious: Yes (Other)
  Sender: FDA-Public Use
  Company Number: 2008BI010575

PATIENT
  Age: 29 Year
  Sex: Female

DRUGS (3)
  1. AVONEX [Suspect]
     Indication: MULTIPLE SCLEROSIS
     Dosage: 30 UG;QW;IM; 30 UG;QW;IM; 30 UG;QW;IM
     Route: 030
     Dates: start: 19980301, end: 20000301
  2. AVONEX [Suspect]
     Indication: MULTIPLE SCLEROSIS
     Dosage: 30 UG;QW;IM; 30 UG;QW;IM; 30 UG;QW;IM
     Route: 030
     Dates: start: 20001212, end: 20030101
  3. AVONEX [Suspect]
     Indication: MULTIPLE SCLEROSIS
     Dosage: 30 UG;QW;IM; 30 UG;QW;IM; 30 UG;QW;IM
     Route: 030
     Dates: start: 20030101, end: 20061201

REACTIONS (1)
  - ABORTION SPONTANEOUS [None]
